FAERS Safety Report 4650388-1 (Version None)
Quarter: 2005Q2

REPORT INFORMATION
  Report Type: 
  Country: None (occurrence: None)
  Receive Date: 20050429
  Receipt Date: 20050415
  Transmission Date: 20051028
  Serious: Yes (Death)
  Sender: FDA-Public Use
  Company Number: 2005-BP-06165CS

PATIENT
  Age: 11 Month

DRUGS (2)
  1. ATROVENT [Suspect]
     Indication: WHEEZING
     Dosage: 50 UG (SEE TEXT, 0.1 UNIT DOSE VIA FOR ONCE (STRENGTH: 500 UG), IH
     Route: 055
     Dates: start: 20050410, end: 20050410
  2. BRICANYL [Suspect]
     Indication: WHEEZING
     Dosage: 2.5 MG (5MG, 0.5 UNIT DOSE VIAL FOR ONCE), IH
     Route: 055
     Dates: start: 20050410, end: 20050410

REACTIONS (1)
  - CYANOSIS [None]
